FAERS Safety Report 11576240 (Version 1)
Quarter: 2015Q3

REPORT INFORMATION
  Report Type: Spontaneous
  Country: CH (occurrence: CH)
  Receive Date: 20150930
  Receipt Date: 20150930
  Transmission Date: 20151125
  Serious: Yes (Other)
  Sender: FDA-Public Use
  Company Number: CH-ASTRAZENECA-2015SE91888

PATIENT
  Age: 12601 Day
  Sex: Female

DRUGS (8)
  1. NEXIUM [Suspect]
     Active Substance: ESOMEPRAZOLE MAGNESIUM
     Route: 048
     Dates: start: 2013
  2. ASPIRIN CARDIO [Concomitant]
     Active Substance: ASPIRIN
     Route: 048
  3. ITINEROL B6 [Concomitant]
     Route: 054
     Dates: start: 201503
  4. PASPERTIN [Concomitant]
     Active Substance: METOCLOPRAMIDE HYDROCHLORIDE
     Dosage: 10 MG (0.1071MG/KG) 3X/DAY
     Route: 048
     Dates: start: 201505
  5. ZOFRAN [Concomitant]
     Active Substance: ONDANSETRON HYDROCHLORIDE
     Route: 048
     Dates: start: 201505
  6. ADALAT [Suspect]
     Active Substance: NIFEDIPINE
     Indication: ESSENTIAL HYPERTENSION
     Route: 048
     Dates: start: 20150506
  7. TRANDATE [Suspect]
     Active Substance: LABETALOL HYDROCHLORIDE
     Indication: ESSENTIAL HYPERTENSION
     Route: 048
     Dates: start: 2013
  8. ACIDE FOLIQUE [Concomitant]
     Active Substance: FOLIC ACID
     Route: 048
     Dates: start: 201503

REACTIONS (2)
  - Exposure during pregnancy [Unknown]
  - Vomiting [Unknown]

NARRATIVE: CASE EVENT DATE: 20150324
